FAERS Safety Report 5565210-9 (Version None)
Quarter: 2007Q4

REPORT INFORMATION
  Report Type: 
  Country: None (occurrence: None)
  Receive Date: 20071218
  Receipt Date: 20041201
  Transmission Date: 20080405
  Serious: Yes (Other)
  Sender: FDA-Public Use
  Company Number: DE-JNJFOC-20071105639

PATIENT
  Age: 22 Year
  Sex: Male
  Weight: 100 kg

DRUGS (1)
  1. HALOPERIDOL [Suspect]
     Indication: SCHIZOPHRENIA
     Dosage: TOTAL DAILY DOSE: 10MG
     Route: 048

REACTIONS (2)
  - EXTRAPYRAMIDAL DISORDER [None]
  - WEIGHT INCREASED [None]
